FAERS Safety Report 7039581-0 (Version None)
Quarter: 2010Q4

REPORT INFORMATION
  Report Type: 
  Country: None (occurrence: None)
  Receive Date: 20101012
  Receipt Date: 20101006
  Transmission Date: 20110411
  Serious: Yes (Death, Hospitalization)
  Sender: FDA-Public Use
  Company Number: A0788359A

PATIENT
  Age: 68 Year
  Sex: Male

DRUGS (1)
  1. AVANDIA [Suspect]
     Indication: DIABETES MELLITUS
     Route: 048
     Dates: start: 20010228

REACTIONS (4)
  - CARDIAC DISORDER [None]
  - CHRONIC LYMPHOCYTIC LEUKAEMIA [None]
  - HEPATITIS B [None]
  - TYPE 2 DIABETES MELLITUS [None]
